FAERS Safety Report 5266838-6 (Version None)
Quarter: 2007Q1

REPORT INFORMATION
  Report Type: 
  Country: None (occurrence: None)
  Receive Date: 20070223
  Receipt Date: 20070212
  Transmission Date: 20070707
  Serious: Yes (Life-Threatening, Other)
  Sender: FDA-Public Use
  Company Number: 200711456

PATIENT
  Age: 2 Year
  Sex: Male

DRUGS (4)
  1. SANDOGLOBULIN [Suspect]
  2. WHOLE BLOOD [Concomitant]
  3. HEMOFIL [Concomitant]
  4. FACTOR VIII (BAYER, CUTTER, BAXTER) [Concomitant]

REACTIONS (9)
  - ACQUIRED IMMUNODEFICIENCY SYNDROME [None]
  - FACTOR VIII INHIBITION [None]
  - HEPATITIS A [None]
  - HEPATITIS B [None]
  - HEPATITIS C [None]
  - HIV TEST POSITIVE [None]
  - PHARMACEUTICAL PRODUCT COMPLAINT [None]
  - POOR QUALITY DRUG ADMINISTERED [None]
  - THERAPEUTIC PRODUCT CONTAMINATION [None]
